FAERS Safety Report 4806176-6 (Version None)
Quarter: 2005Q4

REPORT INFORMATION
  Report Type: 
  Country: None (occurrence: None)
  Receive Date: 20051021
  Receipt Date: 20051011
  Transmission Date: 20060501
  Serious: Yes (Hospitalization, Disabling, Other)
  Sender: FDA-Public Use
  Company Number: US-MERCK-0510USA06916

PATIENT
  Age: 75 Year
  Sex: Male
  Weight: 102 kg

DRUGS (9)
  1. VIOXX [Suspect]
     Indication: ARTHRALGIA
     Route: 048
     Dates: start: 19991124, end: 20030530
  2. TRIAMCINOLONE [Concomitant]
     Route: 048
  3. COLCHICINE [Concomitant]
     Route: 048
  4. ADVAIR DISKUS 100/50 [Concomitant]
     Route: 055
  5. EFUDEX [Concomitant]
     Route: 048
  6. ASPIRIN [Concomitant]
     Route: 048
  7. COREG [Concomitant]
     Route: 048
  8. CYCLOBENZAPRINE HYDROCHLORIDE [Concomitant]
     Route: 048
  9. DESOWEN [Concomitant]
     Route: 061

REACTIONS (8)
  - ARTHROPATHY [None]
  - CARDIAC DISORDER [None]
  - DYSPEPSIA [None]
  - FALL [None]
  - GOUT [None]
  - JOINT DISLOCATION [None]
  - JOINT INJURY [None]
  - MYOCARDIAL INFARCTION [None]
